FAERS Safety Report 4742074-4 (Version None)
Quarter: 2005Q3

REPORT INFORMATION
  Report Type: 
  Country: None (occurrence: None)
  Receive Date: 20050810
  Receipt Date: 20050810
  Transmission Date: 20060218
  Serious: Yes (Hospitalization)
  Sender: FDA-Public Use
  Company Number: None

PATIENT
  Age: 88 Year
  Sex: Male
  Weight: 86.5 kg

DRUGS (6)
  1. ASPIRIN [Suspect]
     Indication: CORONARY ARTERY DISEASE
     Dosage: 81 MG DAILY
  2. DONEPEZIL HCL [Concomitant]
  3. CALCIUM/VITAMIN D [Concomitant]
  4. QUETIAPINE FUMARATE [Concomitant]
  5. CLOTRIMAZOLE [Concomitant]
  6. ALENDRONATE [Concomitant]

REACTIONS (2)
  - DIVERTICULUM INTESTINAL HAEMORRHAGIC [None]
  - GASTRITIS [None]
